FAERS Safety Report 8611387-8 (Version None)
Quarter: 2012Q3

REPORT INFORMATION
  Report Type: 
  Country: None (occurrence: None)
  Receive Date: 20120822
  Receipt Date: 20120820
  Transmission Date: 20120928
  Serious: Yes (Other)
  Sender: FDA-Public Use
  Company Number: US-PFIZER INC-2012186063

PATIENT
  Age: 87 Year
  Sex: Male

DRUGS (4)
  1. SYNTHROID [Concomitant]
     Dosage: UNK
  2. ASPIRIN [Concomitant]
     Dosage: UNK
  3. LIPITOR [Suspect]
     Dosage: UNK
     Dates: start: 19970101
  4. PLAVIX [Concomitant]
     Dosage: UNK

REACTIONS (2)
  - MOBILITY DECREASED [None]
  - CEREBROVASCULAR ACCIDENT [None]
